FAERS Safety Report 18639130 (Version 2)
Quarter: 2020Q4

REPORT INFORMATION
  Report Type: Spontaneous
  Country: BR (occurrence: BR)
  Receive Date: 20201219
  Receipt Date: 20201223
  Transmission Date: 20210114
  Serious: Yes (Other)
  Sender: FDA-Public Use
  Company Number: NVSC2020BR327920

PATIENT
  Sex: Female

DRUGS (3)
  1. SEEBRI [Suspect]
     Active Substance: GLYCOPYRROLATE
     Indication: CHRONIC OBSTRUCTIVE PULMONARY DISEASE
     Dosage: (STARTED MANY YEARS AGO)
     Route: 065
  2. ONBRIZE [Suspect]
     Active Substance: INDACATEROL MALEATE
     Indication: CHRONIC OBSTRUCTIVE PULMONARY DISEASE
     Dosage: (STARTED MANY YEARS AGO)
     Route: 065
  3. ULTIBRO [Suspect]
     Active Substance: GLYCOPYRRONIUM\INDACATEROL
     Indication: CHRONIC OBSTRUCTIVE PULMONARY DISEASE
     Dosage: UNK, STARTED FEW WEEKS AGO
     Route: 065

REACTIONS (5)
  - Hypertension [Unknown]
  - Throat tightness [Not Recovered/Not Resolved]
  - Diabetes mellitus [Unknown]
  - Oropharyngeal discomfort [Unknown]
  - COVID-19 [Unknown]
